FAERS Safety Report 9313384 (Version 2)
Quarter: 2013Q3

REPORT INFORMATION
  Report Type: Report from Study
  Country: IL (occurrence: IL)
  Receive Date: 20130528
  Receipt Date: 20130801
  Transmission Date: 20140515
  Serious: Yes (Other)
  Sender: FDA-Public Use
  Company Number: IL-ELI_LILLY_AND_COMPANY-IL201305005741

PATIENT
  Sex: Female

DRUGS (1)
  1. TERIPARATIDE [Suspect]
     Indication: OSTEOPOROSIS
     Dosage: 20 UG, QD
     Route: 058
     Dates: start: 20120808, end: 20130401

REACTIONS (7)
  - Myocardial infarction [Recovering/Resolving]
  - Blood pressure [Not Recovered/Not Resolved]
  - Blood disorder [Recovering/Resolving]
  - Headache [Recovering/Resolving]
  - Local swelling [Not Recovered/Not Resolved]
  - Injection site pain [Recovering/Resolving]
  - Memory impairment [Recovering/Resolving]
